FAERS Safety Report 25338663 (Version 4)
Quarter: 2025Q3

REPORT INFORMATION
  Report Type: Spontaneous
  Country: US (occurrence: US)
  Receive Date: 20250520
  Receipt Date: 20250905
  Transmission Date: 20251020
  Serious: Yes (Hospitalization, Other)
  Sender: MALLINCKRODT
  Company Number: US-MALLINCKRODT-MNK202502326

PATIENT
  Age: 65 Year
  Sex: Male

DRUGS (2)
  1. CORTICOTROPIN [Suspect]
     Active Substance: CORTICOTROPIN
     Indication: Sarcoidosis
     Route: 058
     Dates: start: 20250413, end: 2025
  2. FUROSEMIDE [Concomitant]
     Active Substance: FUROSEMIDE

REACTIONS (13)
  - Chronic obstructive pulmonary disease [Unknown]
  - Cataract [Unknown]
  - Blood glucose fluctuation [Unknown]
  - Dementia [Unknown]
  - Cardiac failure congestive [Recovering/Resolving]
  - Tremor [Unknown]
  - Brain fog [Not Recovered/Not Resolved]
  - Crying [Unknown]
  - Swelling [Recovering/Resolving]
  - Asthenia [Unknown]
  - Fatigue [Unknown]
  - Fluid retention [Unknown]
  - Injection site discharge [Recovering/Resolving]

NARRATIVE: CASE EVENT DATE: 20250101
